FAERS Safety Report 23634951 (Version 1)
Quarter: 2024Q1

REPORT INFORMATION
  Report Type: Other
  Country: US (occurrence: None)
  Receive Date: 20240315
  Receipt Date: 20240315
  Transmission Date: 20240410
  Serious: Yes (Death)
  Sender: FDA-Public Use
  Company Number: US-ROCHE-3526650

PATIENT
  Age: 85 Year
  Sex: Female

DRUGS (10)
  1. ROZLYTREK [Suspect]
     Active Substance: ENTRECTINIB
     Indication: Neuroendocrine carcinoma
     Dosage: TAKE 3 CAPSULE(S) BY MOUTH EVERY DAY
     Route: 048
     Dates: start: 20240207
  2. VITAMIN B12 [Concomitant]
     Active Substance: CYANOCOBALAMIN
  3. COLACE [Concomitant]
     Active Substance: DOCUSATE SODIUM
  4. VITAMIN D2 [Concomitant]
     Active Substance: ERGOCALCIFEROL
  5. FISH OIL [Concomitant]
     Active Substance: FISH OIL
  6. NEURONTIN [Concomitant]
     Active Substance: GABAPENTIN
  7. PRINIVIL [Concomitant]
     Active Substance: LISINOPRIL
  8. SINGULAIR [Concomitant]
     Active Substance: MONTELUKAST SODIUM
  9. ROXICODONE [Concomitant]
     Active Substance: OXYCODONE HYDROCHLORIDE
  10. PROTONIX [Concomitant]
     Active Substance: PANTOPRAZOLE SODIUM

REACTIONS (2)
  - Death [Fatal]
  - Off label use [Unknown]
